FAERS Safety Report 4566347-3 (Version None)
Quarter: 2005Q1

REPORT INFORMATION
  Report Type: 
  Country: None (occurrence: None)
  Receive Date: 20050201
  Receipt Date: 20050126
  Transmission Date: 20050727
  Serious: Yes (Hospitalization)
  Sender: FDA-Public Use
  Company Number: 200510323FR

PATIENT
  Age: 75 Year
  Sex: Male

DRUGS (4)
  1. ARAVA [Suspect]
     Indication: RHEUMATOID ARTHRITIS
     Route: 048
     Dates: start: 20040701, end: 20041201
  2. CORTANCYL [Concomitant]
     Route: 048
  3. CELLCEPT [Concomitant]
     Route: 048
  4. DEROXAT [Concomitant]
     Route: 048

REACTIONS (4)
  - ASTHENIA [None]
  - NAUSEA [None]
  - SALIVARY HYPERSECRETION [None]
  - VOMITING [None]
